FAERS Safety Report 5330199-4 (Version None)
Quarter: 2007Q2

REPORT INFORMATION
  Report Type: 
  Country: None (occurrence: None)
  Receive Date: 20070515
  Receipt Date: 20070502
  Transmission Date: 20071010
  Serious: Yes (Other)
  Sender: FDA-Public Use
  Company Number: 07-001015

PATIENT
  Age: 61 Year
  Sex: Female
  Weight: 62.6 kg

DRUGS (2)
  1. FEMRING [Suspect]
     Indication: MENOPAUSE
     Dosage: 0.05 MG, QD, VAGINAL
     Route: 067
     Dates: start: 20010101
  2. CABERGOLINE [Concomitant]

REACTIONS (4)
  - BREAST SWELLING [None]
  - BREAST TENDERNESS [None]
  - DRUG INEFFECTIVE [None]
  - GLAUCOMA [None]
